FAERS Safety Report 15289951 (Version 1)
Quarter: 2018Q3

REPORT INFORMATION
  Report Type: Spontaneous
  Country: IT (occurrence: IT)
  Receive Date: 20180804
  Receipt Date: 20180804
  Transmission Date: 20181010
  Serious: Yes (Other)
  Sender: FDA-Public Use
  Company Number: None

PATIENT
  Age: 29 Year
  Sex: Female
  Weight: 43 kg

DRUGS (1)
  1. PROPYCIL 50 MG [Suspect]
     Active Substance: PROPYLTHIOURACIL
     Indication: BASEDOW^S DISEASE
     Route: 048
     Dates: start: 19990108, end: 20080112

REACTIONS (8)
  - Haemoptysis [None]
  - Aphonia [None]
  - Cough [None]
  - Interstitial lung disease [None]
  - Pneumonitis [None]
  - Computerised tomogram thorax abnormal [None]
  - Asthenia [None]
  - Bronchiectasis [None]

NARRATIVE: CASE EVENT DATE: 20080108
